FAERS Safety Report 7462203-1 (Version None)
Quarter: 2011Q2

REPORT INFORMATION
  Report Type: 
  Country: None (occurrence: None)
  Receive Date: 20110506
  Receipt Date: 20110208
  Transmission Date: 20111010
  Serious: Yes (Hospitalization, Other)
  Sender: FDA-Public Use
  Company Number: US-BAYER-201023411NA

PATIENT
  Age: 26 Year
  Sex: Female
  Weight: 60.317 kg

DRUGS (6)
  1. CELEBREX [Concomitant]
     Indication: PAIN IN EXTREMITY
  2. VICODIN [Concomitant]
     Indication: SWELLING
  3. CELEBREX [Concomitant]
     Indication: SWELLING
  4. YASMIN [Suspect]
     Indication: PRODUCT USED FOR UNKNOWN INDICATION
     Route: 048
     Dates: start: 20070301, end: 20070419
  5. NSAID'S [Concomitant]
     Indication: PAIN
     Dosage: UNK UNK, PRN
  6. VICODIN [Concomitant]
     Indication: PAIN IN EXTREMITY

REACTIONS (2)
  - DEEP VEIN THROMBOSIS [None]
  - VAGINAL HAEMORRHAGE [None]
